FAERS Safety Report 4570397-0 (Version None)
Quarter: 2005Q1

REPORT INFORMATION
  Report Type: 
  Country: None (occurrence: None)
  Receive Date: 20050126
  Receipt Date: 20050126
  Transmission Date: 20050727
  Serious: Yes (Life-Threatening, Hospitalization)
  Sender: FDA-Public Use
  Company Number: None

PATIENT
  Age: 76 Year
  Sex: Male
  Weight: 59.4212 kg

DRUGS (4)
  1. CELEBREX [Suspect]
     Indication: OSTEOARTHRITIS
     Dosage: ORAL QD
     Route: 048
     Dates: start: 20021201
  2. PROCARDIA XL [Concomitant]
  3. ALDOMET [Concomitant]
  4. DYAZIDE [Concomitant]

REACTIONS (1)
  - ACUTE MYOCARDIAL INFARCTION [None]
